FAERS Safety Report 5829664-2 (Version None)
Quarter: 2008Q3

REPORT INFORMATION
  Report Type: 
  Country: None (occurrence: None)
  Receive Date: 20080729
  Receipt Date: 20080722
  Transmission Date: 20090109
  Serious: Yes (Hospitalization)
  Sender: FDA-Public Use
  Company Number: SP01934

PATIENT
  Age: 79 Year
  Sex: Female

DRUGS (1)
  1. VISICOL [Suspect]
     Indication: COLONOSCOPY
     Dosage: ORAL
     Route: 048
     Dates: start: 20080529, end: 20080529

REACTIONS (4)
  - DEHYDRATION [None]
  - HYPOAESTHESIA [None]
  - HYPOKALAEMIA [None]
  - VOMITING [None]
